FAERS Safety Report 5740087-7 (Version None)
Quarter: 2008Q2

REPORT INFORMATION
  Report Type: 
  Country: None (occurrence: None)
  Receive Date: 20080516
  Receipt Date: 20080505
  Transmission Date: 20081010
  Serious: Yes (Death)
  Sender: FDA-Public Use
  Company Number: HQWYE912504AUG06

PATIENT
  Sex: Female

DRUGS (4)
  1. PREMPRO [Suspect]
     Indication: MENOPAUSAL SYMPTOMS
  2. PROVERA [Suspect]
     Indication: MENOPAUSAL SYMPTOMS
  3. OGEN [Suspect]
     Indication: MENOPAUSAL SYMPTOMS
  4. PREMARIN [Suspect]
     Indication: MENOPAUSAL SYMPTOMS

REACTIONS (1)
  - OVARIAN CANCER METASTATIC [None]
